FAERS Safety Report 17077258 (Version 1)
Quarter: 2019Q4

REPORT INFORMATION
  Report Type: Spontaneous
  Country: NL (occurrence: NL)
  Receive Date: 20191126
  Receipt Date: 20191126
  Transmission Date: 20200122
  Serious: Yes (Other)
  Sender: FDA-Public Use
  Company Number: NL-MYLANLABS-2019M1114837

PATIENT
  Sex: Female
  Weight: 90 kg

DRUGS (2)
  1. DICLOFENAC [Suspect]
     Active Substance: DICLOFENAC
     Indication: PROCEDURAL PAIN
     Dosage: 50 MILLIGRAM, ONCE 1 PIECE
     Route: 048
     Dates: start: 20190915, end: 20190915
  2. PARACETAMOL [Concomitant]
     Active Substance: ACETAMINOPHEN
     Dosage: 1000 MILLIGRAM, Q6H, 4DD1000MG
     Dates: start: 20190913

REACTIONS (2)
  - Psychotic symptom [Recovering/Resolving]
  - Confusional state [Recovering/Resolving]
